FAERS Safety Report 15750994 (Version 1)
Quarter: 2018Q4

REPORT INFORMATION
  Report Type: Spontaneous
  Country: US (occurrence: US)
  Receive Date: 20181221
  Receipt Date: 20181221
  Transmission Date: 20190205
  Serious: No
  Sender: FDA-Public Use
  Company Number: US-THERAPEUTICSMD-2018TMD00380

PATIENT
  Sex: Female
  Weight: 81.63 kg

DRUGS (4)
  1. IMVEXXY [Suspect]
     Active Substance: ESTRADIOL
     Indication: HOT FLUSH
     Dosage: 10 ?G, 2X/WEEK
     Route: 067
     Dates: start: 201810, end: 201811
  2. UNSPECIFIED BLOOD PRESSURE MEDICATION [Concomitant]
     Active Substance: UNSPECIFIED INGREDIENT
  3. IMVEXXY [Suspect]
     Active Substance: ESTRADIOL
     Indication: LICHEN SCLEROSUS
     Dosage: 10 ?G, 2X/WEEK
     Route: 067
     Dates: start: 201808, end: 201810
  4. UNSPECIFIED CHOLESTEROL MEDICATION [Concomitant]
     Active Substance: UNSPECIFIED INGREDIENT

REACTIONS (3)
  - Off label use [Recovered/Resolved]
  - Bladder spasm [Recovered/Resolved]
  - Drug ineffective for unapproved indication [Recovered/Resolved]

NARRATIVE: CASE EVENT DATE: 2018
